FAERS Safety Report 6730214-7 (Version None)
Quarter: 2010Q2

REPORT INFORMATION
  Report Type: 
  Country: None (occurrence: None)
  Receive Date: 20100518
  Receipt Date: 20091124
  Transmission Date: 20101027
  Serious: No
  Sender: FDA-Public Use
  Company Number: US-TYCO HEALTHCARE/MALLINCKRODT-T200902234

PATIENT

DRUGS (3)
  1. METHYLIN ER [Suspect]
     Indication: ATTENTION DEFICIT/HYPERACTIVITY DISORDER
     Dosage: 20 MG QD
     Route: 048
     Dates: start: 20091116
  2. METHYLIN ER [Suspect]
     Dosage: 20 MG QD
     Route: 048
  3. METHYLPHENIDATE HCL [Concomitant]
     Dosage: 20 MG

REACTIONS (2)
  - DRUG INEFFECTIVE [None]
  - SOMNOLENCE [None]
